FAERS Safety Report 11155430 (Version 1)
Quarter: 2015Q2

REPORT INFORMATION
  Report Type: Spontaneous
  Country: US (occurrence: None)
  Receive Date: 20150601
  Receipt Date: 20150601
  Transmission Date: 20150821
  Serious: No
  Sender: FDA-Public Use
  Company Number: None

PATIENT
  Age: 76 Year
  Sex: Female
  Weight: 65.32 kg

DRUGS (4)
  1. MYRBETRIQ [Suspect]
     Active Substance: MIRABEGRON
     Indication: INCONTINENCE
     Route: 048
  2. FISH OIL [Concomitant]
     Active Substance: FISH OIL
  3. FIBER [Concomitant]
     Active Substance: PSYLLIUM HUSK
  4. MULT VITAMIN [Concomitant]

REACTIONS (2)
  - Cerebrovascular accident [None]
  - Hallucination [None]

NARRATIVE: CASE EVENT DATE: 20130216
